FAERS Safety Report 5585634-3 (Version None)
Quarter: 2008Q1

REPORT INFORMATION
  Report Type: 
  Country: None (occurrence: None)
  Receive Date: 20080109
  Receipt Date: 20071218
  Transmission Date: 20080703
  Serious: No
  Sender: FDA-Public Use
  Company Number: US-AVENTIS-200810035US

PATIENT
  Age: 26 Year
  Sex: Female

DRUGS (3)
  1. ARAVA [Suspect]
     Indication: RHEUMATOID ARTHRITIS
     Dosage: DOSE: UNK
     Dates: start: 20070716
  2. PREDNISONE TAB [Concomitant]
     Dosage: DOSE: UNK
  3. REMICADE [Concomitant]
     Dosage: DOSE: UNK

REACTIONS (1)
  - DRUG EXPOSURE DURING PREGNANCY [None]
